FAERS Safety Report 7879154-0 (Version None)
Quarter: 2011Q4

REPORT INFORMATION
  Report Type: 
  Country: None (occurrence: None)
  Receive Date: 20111101
  Receipt Date: 20111019
  Transmission Date: 20120403
  Serious: Yes (Hospitalization)
  Sender: FDA-Public Use
  Company Number: US-BAYER-2011-003047

PATIENT
  Age: 34 Year
  Sex: Female
  Weight: 76 kg

DRUGS (8)
  1. SPIRONOLACTONE [Concomitant]
     Dosage: UNK
  2. NIASPAN [Concomitant]
     Dosage: 100 MG, QD
     Route: 048
  3. OPTWOMEN MULTIVITAMIN [Concomitant]
     Dosage: UNK UNK, QD
  4. ASPIRIN [Concomitant]
  5. YASMIN [Suspect]
     Indication: PREMENSTRUAL SYNDROME
  6. YASMIN [Suspect]
     Indication: POLYCYSTIC OVARIES
  7. YASMIN [Suspect]
     Indication: CONTRACEPTION
     Dosage: UNK
     Dates: start: 20050501, end: 20081203
  8. SYNTHROID [Concomitant]
     Dosage: UNK UNK, QD
     Route: 048

REACTIONS (8)
  - ARTHRALGIA [None]
  - DEEP VEIN THROMBOSIS [None]
  - OEDEMA PERIPHERAL [None]
  - MUSCULOSKELETAL STIFFNESS [None]
  - PULMONARY EMBOLISM [None]
  - MENSTRUATION IRREGULAR [None]
  - PAIN [None]
  - PAIN IN EXTREMITY [None]
